FAERS Safety Report 10669359 (Version 1)
Quarter: 2014Q4

REPORT INFORMATION
  Report Type: Spontaneous
  Country: US (occurrence: US)
  Receive Date: 20141222
  Receipt Date: 20141222
  Transmission Date: 20150529
  Serious: No
  Sender: FDA-Public Use
  Company Number: US-GLAXOSMITHKLINE-A1051289A

PATIENT

DRUGS (5)
  1. CEPHALEXIN. [Concomitant]
     Active Substance: CEPHALEXIN
  2. AVODART [Suspect]
     Active Substance: DUTASTERIDE
     Indication: PROSTATOMEGALY
     Route: 048
     Dates: start: 20131120
  3. RAPAFLO [Suspect]
     Active Substance: SILODOSIN
     Indication: PROSTATOMEGALY
     Route: 048
     Dates: start: 20131120
  4. AMANTADINE [Concomitant]
     Active Substance: AMANTADINE
  5. PHENAZOPYRIDINE. [Concomitant]
     Active Substance: PHENAZOPYRIDINE

REACTIONS (4)
  - Dyspnoea [Unknown]
  - Dry mouth [Unknown]
  - Nasal congestion [Unknown]
  - Sinus disorder [Unknown]

NARRATIVE: CASE EVENT DATE: 20131120
